FAERS Safety Report 25547244 (Version 1)
Quarter: 2025Q3

REPORT INFORMATION
  Report Type: Spontaneous
  Country: GB (occurrence: GB)
  Receive Date: 20250714
  Receipt Date: 20250714
  Transmission Date: 20251020
  Serious: Yes (Hospitalization, Other)
  Sender: ADVANZ PHARMA
  Company Number: GB-PHARMVIT-4556-3352-ER25-RN1512

PATIENT

DRUGS (1)
  1. PREDNISOLONE [Interacting]
     Active Substance: PREDNISOLONE

REACTIONS (7)
  - Neutropenic sepsis [Recovered/Resolved]
  - Pulmonary cavitation [Recovered/Resolved]
  - Drug-disease interaction [Recovered/Resolved]
  - Immunosuppression [Recovered/Resolved]
  - Pneumonia streptococcal [Recovered/Resolved]
  - Fungal infection [Recovered/Resolved]
  - Exposure during pregnancy [Recovered/Resolved]
